FAERS Safety Report 8773614 (Version 2)
Quarter: 2012Q4

REPORT INFORMATION
  Report Type: 
  Country: PH (occurrence: PH)
  Receive Date: 20120907
  Receipt Date: 20120913
  Transmission Date: 20130627
  Serious: Yes (Hospitalization, Other)
  Sender: FDA-Public Use
  Company Number: PHHY2012PH077426

PATIENT
  Sex: Female

DRUGS (2)
  1. ACLASTA [Suspect]
     Dosage: 5 mg/100 mL
     Route: 042
     Dates: start: 20120829
  2. CATAFLAM [Concomitant]
     Indication: COMPRESSION FRACTURE

REACTIONS (11)
  - Pneumonia [Recovering/Resolving]
  - Wheezing [Unknown]
  - Nausea [Recovering/Resolving]
  - Pyrexia [Recovering/Resolving]
  - Decreased appetite [Not Recovered/Not Resolved]
  - Pleural effusion [Recovering/Resolving]
  - Hypersensitivity [Recovering/Resolving]
  - Blood creatinine increased [Recovering/Resolving]
  - Joint swelling [Unknown]
  - Vertigo [Recovering/Resolving]
  - Vomiting [Recovering/Resolving]
